FAERS Safety Report 9254634 (Version 1)
Quarter: 2013Q2

REPORT INFORMATION
  Report Type: Spontaneous
  Country: US (occurrence: None)
  Receive Date: 20130422
  Receipt Date: 20130422
  Transmission Date: 20140414
  Serious: Yes (Other)
  Sender: FDA-Public Use
  Company Number: None

PATIENT
  Age: 77 Year
  Sex: Female
  Weight: 72.58 kg

DRUGS (3)
  1. XARELTO 15 MG JANSSEN [Suspect]
     Indication: ATRIAL FIBRILLATION
     Route: 048
     Dates: start: 20130321, end: 20130419
  2. XARELTO 15 MG JANSSEN [Suspect]
     Indication: CEREBROVASCULAR ACCIDENT
     Route: 048
     Dates: start: 20130321, end: 20130419
  3. XARELTO 15 MG JANSSEN [Suspect]
     Indication: OPTIC ISCHAEMIC NEUROPATHY
     Route: 048
     Dates: start: 20130321, end: 20130419

REACTIONS (1)
  - Blood glucose increased [None]
